FAERS Safety Report 8971965 (Version 1)
Quarter: 2012Q4

REPORT INFORMATION
  Report Type: 
  Country: IT (occurrence: IT)
  Receive Date: 20121218
  Receipt Date: 20121218
  Transmission Date: 20130627
  Serious: Yes (Hospitalization, Other)
  Sender: FDA-Public Use
  Company Number: PHHY2012IT116243

PATIENT
  Age: 39 Year
  Sex: Male

DRUGS (8)
  1. CITALOPRAM SANDOZ [Suspect]
     Dosage: 10 posologic units, total
     Route: 048
     Dates: start: 20120717, end: 20120717
  2. PLAQUENIL [Suspect]
     Dosage: 10 posologic units, total
     Route: 048
     Dates: start: 20120717, end: 20120717
  3. ANAFRANIL [Suspect]
     Dosage: 10 posologic units in total
     Route: 048
     Dates: start: 20120717, end: 20120717
  4. VALPROIC ACID [Suspect]
     Dosage: 10 posologic units total
     Route: 048
     Dates: start: 20120717, end: 20120717
  5. ACECLOFENAC [Suspect]
     Dosage: 20 posologic units
     Route: 048
     Dates: start: 20120717, end: 20120717
  6. ALLOPURINOL [Concomitant]
     Route: 048
  7. FLUOXETINE [Concomitant]
     Route: 048
  8. METFORMIN [Concomitant]
     Route: 048

REACTIONS (7)
  - Hyporeflexia [Recovered/Resolved]
  - Sopor [Recovered/Resolved]
  - Somnolence [Recovered/Resolved]
  - Overdose [Recovered/Resolved]
  - Toxicity to various agents [Unknown]
  - Drug abuse [Unknown]
  - Blood creatine phosphokinase increased [Unknown]
